FAERS Safety Report 21295981 (Version 9)
Quarter: 2024Q3

REPORT INFORMATION
  Report Type: Report from Study
  Country: US (occurrence: US)
  Receive Date: 20220906
  Receipt Date: 20240925
  Transmission Date: 20241017
  Serious: No
  Sender: GLAXOSMITHKLINE
  Company Number: US-GLAXOSMITHKLINE-US2022AMR127494

PATIENT
  Sex: Female

DRUGS (2)
  1. NIRAPARIB [Suspect]
     Active Substance: NIRAPARIB
     Indication: Ovarian cancer
     Dosage: 200 MG, QD (IN MORNING)
     Dates: start: 20220809
  2. NIRAPARIB [Suspect]
     Active Substance: NIRAPARIB
     Dosage: 200 MG, QD (IN EVENING)

REACTIONS (10)
  - Nausea [Recovered/Resolved]
  - Fatigue [Not Recovered/Not Resolved]
  - Nail discolouration [Not Recovered/Not Resolved]
  - Hernia [Not Recovered/Not Resolved]
  - Decreased activity [Not Recovered/Not Resolved]
  - Surgery [Unknown]
  - Oophorectomy [Not Recovered/Not Resolved]
  - Mass [Not Recovered/Not Resolved]
  - Product dose omission in error [Unknown]
  - Abdominal discomfort [Not Recovered/Not Resolved]
